FAERS Safety Report 7967441-7 (Version None)
Quarter: 2011Q4

REPORT INFORMATION
  Report Type: 
  Country: None (occurrence: None)
  Receive Date: 20111209
  Receipt Date: 20111206
  Transmission Date: 20120403
  Serious: Yes (Other)
  Sender: FDA-Public Use
  Company Number: US-B.I. PHARMACEUTICALS,INC./RIDGEFIELD-2011-BP-27562BP

PATIENT
  Age: 64 Year

DRUGS (8)
  1. SPIRIVA [Suspect]
     Indication: CHRONIC OBSTRUCTIVE PULMONARY DISEASE
  2. SIMVASTATIN [Concomitant]
  3. LISINOPRIL [Concomitant]
  4. PULMICORT [Concomitant]
  5. [LOPID] PLAVIX [Concomitant]
  6. LOPID [PLAVIX] [Concomitant]
  7. PERFOR0MIST [Concomitant]
  8. METFORMIN HCL [Concomitant]

REACTIONS (2)
  - PHARYNGEAL OEDEMA [None]
  - ANGIOEDEMA [None]
